FAERS Safety Report 10802052 (Version 3)
Quarter: 2015Q2

REPORT INFORMATION
  Report Type: Spontaneous
  Country: IT (occurrence: IT)
  Receive Date: 20150217
  Receipt Date: 20150611
  Transmission Date: 20150821
  Serious: Yes (Death, Hospitalization, Other)
  Sender: FDA-Public Use
  Company Number: IT-ELI_LILLY_AND_COMPANY-IT201502004821

PATIENT
  Age: 75 Year
  Sex: Male

DRUGS (2)
  1. CISPLATIN ACCORD HEALTHCARE [Suspect]
     Active Substance: CISPLATIN
     Indication: LUNG ADENOCARCINOMA
     Dosage: 110 MG, OTHER: EVERY 21 DAYS
     Route: 042
     Dates: start: 20141231, end: 20141231
  2. ALIMTA [Suspect]
     Active Substance: PEMETREXED DISODIUM
     Indication: LUNG ADENOCARCINOMA
     Dosage: 950 MG, OTHER: EVERY 21 DAYS
     Route: 042
     Dates: start: 20141231, end: 20141231

REACTIONS (14)
  - Blood creatinine increased [Unknown]
  - Demyelination [Unknown]
  - Asthenia [Unknown]
  - Oral candidiasis [Unknown]
  - Neutropenic sepsis [Fatal]
  - Arteriosclerosis [Unknown]
  - Malignant neoplasm progression [Unknown]
  - Multi-organ failure [Fatal]
  - Respiratory failure [Unknown]
  - Pleural effusion [Unknown]
  - White blood cell count decreased [Unknown]
  - Cardio-respiratory arrest [Fatal]
  - Tachypnoea [Unknown]
  - Decreased appetite [Unknown]

NARRATIVE: CASE EVENT DATE: 20150102
